FAERS Safety Report 5571447-5 (Version None)
Quarter: 2007Q4

REPORT INFORMATION
  Report Type: 
  Country: None (occurrence: None)
  Receive Date: 20071221
  Receipt Date: 20071219
  Transmission Date: 20080405
  Serious: Yes (Life-Threatening)
  Sender: FDA-Public Use
  Company Number: IT-WYE-G00702807

PATIENT
  Sex: Male

DRUGS (1)
  1. TAZOCIN [Suspect]
     Indication: PNEUMONITIS
     Route: 042
     Dates: start: 20071027, end: 20071126

REACTIONS (4)
  - CYANOSIS [None]
  - DYSPNOEA [None]
  - ERYTHEMA [None]
  - LARYNGEAL OEDEMA [None]
